FAERS Safety Report 6357664-5 (Version None)
Quarter: 2009Q3

REPORT INFORMATION
  Report Type: 
  Country: None (occurrence: None)
  Receive Date: 20090911
  Receipt Date: 20080819
  Transmission Date: 20100115
  Serious: Yes (Hospitalization)
  Sender: FDA-Public Use
  Company Number: 2008S1014998

PATIENT
  Age: 46 Year
  Sex: Female

DRUGS (13)
  1. CITALOPRAM [Suspect]
     Indication: DEPRESSION
     Dosage: 20 MG; DAILY
  2. FLUCONAZOLE [Suspect]
     Dosage: 200 MG; DAILY
  3. ESOMEPRAZOLE [Suspect]
     Dosage: 20 MG DAILY
  4. METHOTREXATE [Concomitant]
  5. PREDNISONE TAB [Concomitant]
  6. IMATINIB MESYLATE [Concomitant]
  7. TOPIRAMATE [Concomitant]
  8. DAPSONE [Concomitant]
  9. ACYCLOVIR [Concomitant]
  10. DEXAMETHASONE [Concomitant]
  11. ZOLPIDEM [Concomitant]
  12. HYDROCHLOROTHIAZIDE W/LOSARTAN [Concomitant]
  13. VINCRISTINE [Concomitant]

REACTIONS (9)
  - AREFLEXIA [None]
  - CONFUSIONAL STATE [None]
  - CONVULSION [None]
  - DRUG INTERACTION [None]
  - DRUG TOXICITY [None]
  - MEMORY IMPAIRMENT [None]
  - PERSEVERATION [None]
  - PSYCHOMOTOR SKILLS IMPAIRED [None]
  - SEROTONIN SYNDROME [None]
